FAERS Safety Report 24296696 (Version 1)
Quarter: 2024Q3

REPORT INFORMATION
  Report Type: Spontaneous
  Country: CA (occurrence: CA)
  Receive Date: 20240909
  Receipt Date: 20240909
  Transmission Date: 20241017
  Serious: Yes (Hospitalization, Other)
  Sender: MERCK
  Company Number: CA-009507513-2409CAN001519

PATIENT
  Age: 70 Year
  Sex: Male
  Weight: 77 kg

DRUGS (9)
  1. INVANZ [Suspect]
     Active Substance: ERTAPENEM SODIUM
     Indication: Urinary tract infection
     Dosage: 1000 MILLIGRAM, Q24H, DURATION: 8 DAYS
     Route: 042
  2. INVANZ [Suspect]
     Active Substance: ERTAPENEM SODIUM
     Indication: Osteomyelitis
  3. INVANZ [Suspect]
     Active Substance: ERTAPENEM SODIUM
     Indication: Fistula
  4. INVANZ [Suspect]
     Active Substance: ERTAPENEM SODIUM
     Indication: Arthritis bacterial
  5. ATENOLOL [Concomitant]
     Active Substance: ATENOLOL
     Route: 065
  6. ATORVASTATIN [Concomitant]
     Active Substance: ATORVASTATIN
     Route: 065
  7. DEXILANT [Concomitant]
     Active Substance: DEXLANSOPRAZOLE
     Route: 065
  8. FOLIC ACID [Concomitant]
     Active Substance: FOLIC ACID
     Route: 065
  9. THIAMINE [Concomitant]
     Active Substance: THIAMINE
     Route: 065

REACTIONS (1)
  - Neutropenia [Recovered/Resolved]
